FAERS Safety Report 15591766 (Version 1)
Quarter: 2018Q4

REPORT INFORMATION
  Report Type: Spontaneous
  Country: SK (occurrence: SK)
  Receive Date: 20181106
  Receipt Date: 20181106
  Transmission Date: 20190205
  Serious: Yes (Other)
  Sender: FDA-Public Use
  Company Number: SK-JNJFOC-20181041850

PATIENT
  Age: 7 Decade
  Sex: Male

DRUGS (2)
  1. DARATUMUMAB [Suspect]
     Active Substance: DARATUMUMAB
     Indication: PLASMA CELL MYELOMA
     Route: 042
     Dates: start: 20181017
  2. DARATUMUMAB [Suspect]
     Active Substance: DARATUMUMAB
     Indication: PLASMA CELL MYELOMA
     Dosage: AT A DECREASED RATE
     Route: 042

REACTIONS (4)
  - Respiratory tract oedema [Unknown]
  - Dyspnoea [Unknown]
  - Infusion related reaction [Unknown]
  - Swelling face [Unknown]

NARRATIVE: CASE EVENT DATE: 20181017
